FAERS Safety Report 8125542-7 (Version None)
Quarter: 2012Q1

REPORT INFORMATION
  Report Type: 
  Country: None (occurrence: None)
  Receive Date: 20120209
  Receipt Date: 20120206
  Transmission Date: 20120608
  Serious: Yes (Death, Congenital Anomaly, Other)
  Sender: FDA-Public Use
  Company Number: US-PFIZER INC-2012032046

PATIENT
  Sex: Female

DRUGS (1)
  1. ZOLOFT [Suspect]
     Indication: DEPRESSION
     Dosage: UNK
     Route: 064
     Dates: start: 20100523

REACTIONS (8)
  - CLEFT LIP AND PALATE [None]
  - MATERNAL EXPOSURE TIMING UNSPECIFIED [None]
  - HYPOTELORISM OF ORBIT [None]
  - MACROCEPHALY [None]
  - ATRIAL SEPTAL DEFECT [None]
  - FAILURE TO THRIVE [None]
  - HOLOPROSENCEPHALY [None]
  - PATENT DUCTUS ARTERIOSUS [None]
